FAERS Safety Report 4349495-2 (Version None)
Quarter: 2004Q2

REPORT INFORMATION
  Report Type: 
  Country: None (occurrence: None)
  Receive Date: 20040426
  Receipt Date: 20040412
  Transmission Date: 20050107
  Serious: Yes (Hospitalization, Other)
  Sender: FDA-Public Use
  Company Number: 2004017234

PATIENT
  Age: 26 Year
  Sex: Male
  Weight: 108.8633 kg

DRUGS (10)
  1. GEOGON (ZIPRASIDONE) [Suspect]
     Indication: SCHIZOPHRENIA, PARANOID TYPE
  2. CLONAZEPAM [Concomitant]
  3. LORAZEPAM [Concomitant]
  4. DIPHENHYDRAMINE HCL [Concomitant]
  5. PIOGLITAZONE HCL [Concomitant]
  6. DILTIAZEM HYDROCHLORIDE [Concomitant]
  7. LEVOTHYROXINE SODIUM [Concomitant]
  8. METFORMIN HYDROCHLORIDE [Concomitant]
  9. SERTRALINE HYDROCHLORIDE [Concomitant]
  10. GLYBURIDE [Concomitant]

REACTIONS (23)
  - ABNORMAL BEHAVIOUR [None]
  - AGITATION [None]
  - ANGER [None]
  - ANXIETY [None]
  - BLOOD GLUCOSE INCREASED [None]
  - BLOOD PRESSURE FLUCTUATION [None]
  - BLOOD PRESSURE INCREASED [None]
  - CRYING [None]
  - DELUSION [None]
  - DEPRESSION [None]
  - DYSKINESIA [None]
  - FEAR [None]
  - FLAT AFFECT [None]
  - HALLUCINATION, AUDITORY [None]
  - HALLUCINATION, VISUAL [None]
  - HYPERHIDROSIS [None]
  - INCOHERENT [None]
  - INTENTIONAL SELF-INJURY [None]
  - MUSCLE RIGIDITY [None]
  - NEUROLEPTIC MALIGNANT SYNDROME [None]
  - PSYCHOTIC DISORDER [None]
  - RHABDOMYOLYSIS [None]
  - SCHIZOPHRENIA, PARANOID TYPE [None]
